FAERS Safety Report 24007826 (Version 1)
Quarter: 2024Q2

REPORT INFORMATION
  Report Type: Spontaneous
  Country: FR (occurrence: FR)
  Receive Date: 20240625
  Receipt Date: 20240625
  Transmission Date: 20240716
  Serious: Yes (Hospitalization)
  Sender: FDA-Public Use
  Company Number: None

PATIENT
  Age: 58 Year
  Sex: Male

DRUGS (2)
  1. XARELTO [Suspect]
     Active Substance: RIVAROXABAN
     Indication: Anticoagulant therapy
     Dosage: 20 MG, QD
     Route: 048
     Dates: start: 20240209, end: 20240301
  2. AUGMENTIN [Suspect]
     Active Substance: AMOXICILLIN\CLAVULANATE POTASSIUM
     Indication: Pneumonia aspiration
     Dosage: NP
     Route: 048
     Dates: start: 20240126, end: 20240229

REACTIONS (3)
  - Transaminases increased [Recovering/Resolving]
  - Condition aggravated [Recovering/Resolving]
  - Eosinophilia [Recovering/Resolving]

NARRATIVE: CASE EVENT DATE: 20240228
